FAERS Safety Report 14327366 (Version 3)
Quarter: 2018Q1

REPORT INFORMATION
  Report Type: Spontaneous
  Country: US (occurrence: US)
  Receive Date: 20171227
  Receipt Date: 20180110
  Transmission Date: 20180509
  Serious: No
  Sender: FDA-Public Use
  Company Number: US-PFIZER INC-2017544157

PATIENT
  Age: 63 Year
  Sex: Male
  Weight: 83 kg

DRUGS (1)
  1. ATROPINE SULFATE/DIPHENOXYLATE HYDROCHLORIDE [Suspect]
     Active Substance: ATROPINE SULFATE\DIPHENOXYLATE HYDROCHLORIDE
     Indication: CROHN^S DISEASE
     Dosage: UNK UNK, AS NEEDED, (2-4 TABLETS A DAY)

REACTIONS (5)
  - Functional gastrointestinal disorder [Unknown]
  - Abdominal distension [Recovered/Resolved]
  - Reaction to excipient [Recovered/Resolved]
  - Product use in unapproved indication [Unknown]
  - Documented hypersensitivity to administered product [None]
